FAERS Safety Report 5705837-4 (Version None)
Quarter: 2008Q2

REPORT INFORMATION
  Report Type: 
  Country: None (occurrence: None)
  Receive Date: 20080415
  Receipt Date: 20080402
  Transmission Date: 20081010
  Serious: Yes (Hospitalization)
  Sender: FDA-Public Use
  Company Number: AT-SANOFI-SYNTHELABO-A01200803740

PATIENT
  Age: 68 Year
  Sex: Female

DRUGS (4)
  1. FLUOROURACIL [Suspect]
     Dosage: UNK
     Route: 042
  2. LEUCOVORIN CALCIUM [Suspect]
     Dosage: UNK
     Route: 041
  3. OXALIPLATIN [Suspect]
     Indication: COLON CANCER METASTATIC
     Dosage: UNK
     Route: 041
  4. BEVACIZUMAB [Suspect]
     Dosage: UNK
     Route: 041

REACTIONS (1)
  - REVERSIBLE POSTERIOR LEUKOENCEPHALOPATHY SYNDROME [None]
